FAERS Safety Report 10266142 (Version 1)
Quarter: 2014Q2

REPORT INFORMATION
  Report Type: Spontaneous
  Country: JP (occurrence: JP)
  Receive Date: 20140627
  Receipt Date: 20140627
  Transmission Date: 20141212
  Serious: Yes (Other)
  Sender: FDA-Public Use
  Company Number: JP-LUNDBECK-DKLU1101251

PATIENT
  Age: 50 Year
  Sex: Female

DRUGS (2)
  1. MYSTAN [Suspect]
     Indication: PRODUCT USED FOR UNKNOWN INDICATION
     Route: 048
  2. ALEVIATIN [Suspect]
     Indication: EPILEPSY
     Route: 048

REACTIONS (1)
  - Agranulocytosis [Not Recovered/Not Resolved]
